FAERS Safety Report 9299935 (Version 2)
Quarter: 2014Q1

REPORT INFORMATION
  Report Type: Spontaneous
  Country: US (occurrence: None)
  Receive Date: 20121231
  Receipt Date: 20140304
  Transmission Date: 20141002
  Serious: Yes (Hospitalization, Other)
  Sender: FDA-Public Use
  Company Number: RB-46045-2012

PATIENT
  Sex: Female

DRUGS (3)
  1. SUBOXONE [Suspect]
     Indication: DRUG DEPENDENCE
     Dates: start: 20110625, end: 20110703
  2. SUBOXONE 8 MG [Suspect]
     Indication: DRUG DEPENDENCE
     Route: 060
     Dates: start: 20110704
  3. ANTACIDS [Concomitant]

REACTIONS (10)
  - Activities of daily living impaired [None]
  - Decreased appetite [None]
  - Weight decreased [None]
  - Malaise [None]
  - Vomiting [None]
  - Diarrhoea [None]
  - Abdominal pain [None]
  - Asthenia [None]
  - Dizziness [None]
  - Therapeutic response unexpected [None]
